FAERS Safety Report 5734928-7 (Version None)
Quarter: 2008Q2

REPORT INFORMATION
  Report Type: 
  Country: None (occurrence: None)
  Receive Date: 20080509
  Receipt Date: 20080430
  Transmission Date: 20081010
  Serious: Yes (Hospitalization)
  Sender: FDA-Public Use
  Company Number: APP200800302

PATIENT
  Age: 68 Year
  Sex: Female

DRUGS (5)
  1. HEPARIN SODIUM INJECTION [Suspect]
     Indication: PERCUTANEOUS CORONARY INTERVENTION
     Dosage: 1000 USP UNITS, ONCE, INTRA-ARTERIAL : 4000 USP UNITS, ONCE, INTRA-ARTERIAL
     Route: 013
     Dates: start: 20080409, end: 20080409
  2. HEPARIN SODIUM INJECTION [Suspect]
     Indication: PERCUTANEOUS CORONARY INTERVENTION
     Dosage: 1000 USP UNITS, ONCE, INTRA-ARTERIAL : 4000 USP UNITS, ONCE, INTRA-ARTERIAL
     Route: 013
     Dates: start: 20080409, end: 20080409
  3. VERSED [Concomitant]
  4. HYDROMORPHONE HCL [Concomitant]
  5. OMNIPAQUE 140 [Concomitant]

REACTIONS (6)
  - ABDOMINAL PAIN [None]
  - BLOOD PRESSURE SYSTOLIC INCREASED [None]
  - BRADYCARDIA [None]
  - HYPOTENSION [None]
  - OXYGEN SATURATION DECREASED [None]
  - SYNCOPE VASOVAGAL [None]
